FAERS Safety Report 14471566 (Version 3)
Quarter: 2018Q1

REPORT INFORMATION
  Report Type: Spontaneous
  Country: BG (occurrence: BG)
  Receive Date: 20180131
  Receipt Date: 20180301
  Transmission Date: 20180509
  Serious: Yes (Hospitalization, Other)
  Sender: FDA-Public Use
  Company Number: BG-BAYER-2018-013979

PATIENT
  Age: 12 Year
  Sex: Male

DRUGS (1)
  1. KOVALTRY [Suspect]
     Active Substance: ANTIHEMOPHILIC FACTOR, HUMAN RECOMBINANT
     Indication: FACTOR VIII DEFICIENCY
     Dosage: 1000 IU, BIW
     Route: 042
     Dates: start: 20171206

REACTIONS (5)
  - Subdural hygroma [Recovering/Resolving]
  - Brain compression [Recovering/Resolving]
  - Cerebral haemorrhage [Recovering/Resolving]
  - Headache [None]
  - Head injury [None]

NARRATIVE: CASE EVENT DATE: 20180107
